FAERS Safety Report 8028137-9 (Version None)
Quarter: 2012Q1

REPORT INFORMATION
  Report Type: 
  Country: None (occurrence: None)
  Receive Date: 20120106
  Receipt Date: 20111229
  Transmission Date: 20120608
  Serious: Yes (Other)
  Sender: FDA-Public Use
  Company Number: GB-B.I. PHARMACEUTICALS,INC./RIDGEFIELD-2011-EU-01364GD

PATIENT
  Age: 52 Year
  Sex: Male

DRUGS (6)
  1. NEVIRAPINE [Suspect]
     Indication: HIV INFECTION
  2. AMLODIPINE [Concomitant]
     Indication: HYPERTENSION
  3. AMOXICILLIN AND CLAVULANATE POTASSIUM [Concomitant]
     Indication: RESPIRATORY TRACT INFECTION
  4. QUININE SULFATE [Suspect]
     Indication: RESPIRATORY TRACT INFECTION
     Dosage: 1800 MG
     Route: 048
  5. CLARITHROMYCIN [Suspect]
     Indication: RESPIRATORY TRACT INFECTION
  6. ABACAVIR SULFATE AND LAMIVUDINE [Concomitant]
     Indication: HIV INFECTION

REACTIONS (6)
  - DRUG INTERACTION [None]
  - PLASMODIUM FALCIPARUM INFECTION [None]
  - GENERAL PHYSICAL HEALTH DETERIORATION [None]
  - INCORRECT DOSE ADMINISTERED [None]
  - INFECTION [None]
  - CONDITION AGGRAVATED [None]
